FAERS Safety Report 16158240 (Version 1)
Quarter: 2019Q2

REPORT INFORMATION
  Report Type: Spontaneous
  Country: CA (occurrence: CA)
  Receive Date: 20190404
  Receipt Date: 20190404
  Transmission Date: 20190711
  Serious: Yes (Disabling)
  Sender: FDA-Public Use
  Company Number: CA-PFIZER INC-2019140234

PATIENT
  Age: 25 Year
  Sex: Female
  Weight: 57 kg

DRUGS (1)
  1. ZELDOX [Suspect]
     Active Substance: ZIPRASIDONE
     Indication: SCHIZOAFFECTIVE DISORDER
     Dosage: 120 MG, 1X/DAY
     Route: 048

REACTIONS (3)
  - Disturbance in sexual arousal [Unknown]
  - Anorgasmia [Unknown]
  - Sexual dysfunction [Unknown]
